FAERS Safety Report 9251599 (Version 1)
Quarter: 2013Q1

REPORT INFORMATION
  Report Type: Spontaneous
  Country: US (occurrence: None)
  Receive Date: 20130305
  Receipt Date: 20130305
  Transmission Date: 20140127
  Serious: Yes (Disabling)
  Sender: FDA-Public Use
  Company Number: 163-21880-12062083 (0)

PATIENT
  Age: 68 Year
  Sex: Female

DRUGS (4)
  1. REVLIMID [Suspect]
     Dosage: 1 IN 1 D
     Route: 048
     Dates: start: 201102, end: 20120511
  2. BISOPROLOL HCTZ (BISELECT) [Concomitant]
  3. CELEBREX (CELECOXIB) [Concomitant]
  4. HYDROC/APAP (VICODIN) [Concomitant]

REACTIONS (1)
  - Neuropathy peripheral [None]
